FAERS Safety Report 6243812-4 (Version None)
Quarter: 2009Q2

REPORT INFORMATION
  Report Type: 
  Country: None (occurrence: None)
  Receive Date: 20090623
  Receipt Date: 20090609
  Transmission Date: 20091009
  Serious: No
  Sender: FDA-Public Use
  Company Number: 236116K09USA

PATIENT
  Age: 53 Year
  Sex: Female

DRUGS (4)
  1. REBIF [Suspect]
     Indication: MULTIPLE SCLEROSIS
     Dosage: 44 MCG, 3 IN 1 WEEKS, SUBCUTANEOUS
     Route: 058
     Dates: start: 20080911
  2. LASIX (FUROSEMIDE /00032601/) [Concomitant]
  3. PAIN MEDICATION (ALL OTHER THERAPEUTIC PRODUCTS) [Concomitant]
  4. LISINOPRIL [Concomitant]

REACTIONS (4)
  - ANOREXIA [None]
  - HAEMORRHAGE [None]
  - PNEUMONIA [None]
  - VOMITING [None]
